FAERS Safety Report 15848328 (Version 8)
Quarter: 2019Q3

REPORT INFORMATION
  Report Type: Spontaneous
  Country: US (occurrence: US)
  Receive Date: 20190121
  Receipt Date: 20190820
  Transmission Date: 20191004
  Serious: Yes (Hospitalization, Other)
  Sender: FDA-Public Use
  Company Number: US-PFIZER INC-2019026054

PATIENT
  Age: 59 Year
  Sex: Female

DRUGS (2)
  1. XELJANZ XR [Suspect]
     Active Substance: TOFACITINIB CITRATE
     Indication: RHEUMATOID ARTHRITIS
     Dosage: 11 MG, DAILY
     Route: 048
     Dates: start: 20181118
  2. XELJANZ XR [Suspect]
     Active Substance: TOFACITINIB CITRATE
     Dosage: 11 MG, DAILY
     Dates: start: 20190416

REACTIONS (12)
  - Condition aggravated [Unknown]
  - Condition aggravated [Recovered/Resolved]
  - Pain [Recovering/Resolving]
  - Feeling abnormal [Unknown]
  - Muscular weakness [Unknown]
  - Pain in extremity [Recovered/Resolved]
  - Post procedural infection [Unknown]
  - Arthralgia [Unknown]
  - Bronchitis [Recovered/Resolved]
  - Back pain [Unknown]
  - Joint range of motion decreased [Unknown]
  - Cough [Recovered/Resolved]

NARRATIVE: CASE EVENT DATE: 20190110
